FAERS Safety Report 23398248 (Version 1)
Quarter: 2024Q1

REPORT INFORMATION
  Report Type: Spontaneous
  Country: US (occurrence: US)
  Receive Date: 20240112
  Receipt Date: 20240112
  Transmission Date: 20240409
  Serious: No
  Sender: FDA-Public Use
  Company Number: US-PFIZER INC-202400007750

PATIENT
  Age: 73 Year
  Sex: Female
  Weight: 50.8 kg

DRUGS (18)
  1. IBRANCE [Suspect]
     Active Substance: PALBOCICLIB
     Indication: Breast cancer female
     Dosage: 100MG, BY MOUTH ONCE A DAY FOR 21 DAYS THEN 7 DAY OFF PERIOD
     Route: 048
     Dates: start: 20231220
  2. ASCORBIC ACID [Concomitant]
     Active Substance: ASCORBIC ACID
  3. ATORVASTATIN [Concomitant]
     Active Substance: ATORVASTATIN
  4. BUPROPION [Concomitant]
     Active Substance: BUPROPION
  5. CHLORHEXIDINE GLUCONATE [Concomitant]
     Active Substance: CHLORHEXIDINE GLUCONATE
  6. ELIQUIS [Concomitant]
     Active Substance: APIXABAN
  7. FAMOTIDINE [Concomitant]
     Active Substance: FAMOTIDINE
  8. FLUTICASONE [Concomitant]
     Active Substance: FLUTICASONE
  9. GABAPENTIN [Concomitant]
     Active Substance: GABAPENTIN
  10. LIDOCAINE [Concomitant]
     Active Substance: LIDOCAINE
  11. LOSARTAN [Concomitant]
     Active Substance: LOSARTAN
  12. LOVAZA [Concomitant]
     Active Substance: OMEGA-3-ACID ETHYL ESTERS
  13. METOPROLOL [Concomitant]
     Active Substance: METOPROLOL
  14. MORPHINE [Concomitant]
     Active Substance: MORPHINE
  15. ONDANSETRON [Concomitant]
     Active Substance: ONDANSETRON
  16. TRIAMCINOLONE [Concomitant]
     Active Substance: TRIAMCINOLONE
  17. VITAMIN C [Concomitant]
     Active Substance: ASCORBIC ACID
  18. ZINC GLUCONATE [Concomitant]
     Active Substance: ZINC GLUCONATE

REACTIONS (1)
  - Neoplasm progression [Unknown]
